FAERS Safety Report 4745320-6 (Version None)
Quarter: 2005Q3

REPORT INFORMATION
  Report Type: 
  Country: None (occurrence: None)
  Receive Date: 20050812
  Receipt Date: 20050802
  Transmission Date: 20060218
  Serious: Yes (Hospitalization)
  Sender: FDA-Public Use
  Company Number: HQWYE690504 AUG05

PATIENT
  Age: 38 Year
  Sex: Male

DRUGS (9)
  1. TACROLIMUS, CONTROL FOR SIROLIMUS (TACROLIMUS, CONTROL FOR SIROLIMUS) [Suspect]
     Indication: PROPHYLAXIS AGAINST TRANSPLANT REJECTION
     Dosage: 2 MG 1X PER 1 DAY, ORAL
     Route: 048
     Dates: start: 20030403
  2. ASPIRIN [Concomitant]
  3. TIMOLOL MALEATE [Concomitant]
  4. XALATAN [Concomitant]
  5. NIFEDIPINE [Concomitant]
  6. SIMVASTATIN [Concomitant]
  7. AZATHIOPRINE [Concomitant]
  8. PREDNISONE [Concomitant]
  9. NICOTINE [Concomitant]

REACTIONS (2)
  - HEPATOMEGALY [None]
  - INFECTION [None]
